FAERS Safety Report 15563808 (Version 3)
Quarter: 2018Q4

REPORT INFORMATION
  Report Type: Spontaneous
  Country: US (occurrence: US)
  Receive Date: 20181029
  Receipt Date: 20181114
  Transmission Date: 20190205
  Serious: No
  Sender: FDA-Public Use
  Company Number: US-AMGEN-USASP2018150554

PATIENT
  Age: 73 Year
  Sex: Female

DRUGS (1)
  1. NEULASTA [Suspect]
     Active Substance: PEGFILGRASTIM
     Indication: PRODUCT USED FOR UNKNOWN INDICATION
     Dosage: UNK
     Route: 065
     Dates: start: 20181003, end: 20181025

REACTIONS (4)
  - Rubber sensitivity [Unknown]
  - Bone pain [Recovered/Resolved]
  - Wrong technique in product usage process [Unknown]
  - Influenza like illness [Unknown]

NARRATIVE: CASE EVENT DATE: 201810
